FAERS Safety Report 8870394 (Version 1)
Quarter: 2012Q4

REPORT INFORMATION
  Report Type: 
  Country: US (occurrence: US)
  Receive Date: 20121026
  Receipt Date: 20121026
  Transmission Date: 20130627
  Serious: No
  Sender: FDA-Public Use
  Company Number: US-AMGEN-USASP2012043353

PATIENT
  Age: 21 Year
  Sex: Female
  Weight: 45.35 kg

DRUGS (7)
  1. ENBREL [Suspect]
     Indication: PRODUCT USED FOR UNKNOWN INDICATION
     Dosage: 25 mg, q2wk
     Route: 058
  2. PROBIOTIC [Concomitant]
     Dosage: UNK
  3. CALCIUM [Concomitant]
     Dosage: 500 UNK, UNK
  4. APRI [Concomitant]
     Dosage: UNK
  5. MULTIVITAMIN                       /00097801/ [Concomitant]
     Dosage: UNK
  6. LEFLUNOMIDE [Concomitant]
     Dosage: 10 mg, UNK
  7. MELOXICAM [Concomitant]
     Dosage: 7.5 mg, UNK

REACTIONS (1)
  - Abscess [Recovered/Resolved]
